FAERS Safety Report 9638013 (Version 2)
Quarter: 2013Q4

REPORT INFORMATION
  Report Type: Report from Study
  Country: SK (occurrence: SK)
  Receive Date: 20131022
  Receipt Date: 20131028
  Transmission Date: 20140711
  Serious: Yes (Hospitalization)
  Sender: FDA-Public Use
  Company Number: PHHO2013SK013528

PATIENT
  Sex: 0

DRUGS (6)
  1. AFINITOR [Suspect]
     Indication: TESTICULAR GERM CELL CANCER
     Dosage: 10 MG, QD
     Dates: start: 20130913
  2. BISOCARD [Concomitant]
     Indication: HYPERTENSION
     Dosage: 5 MG, QD
     Route: 048
     Dates: start: 20130828
  3. HELICID [Concomitant]
     Indication: PROPHYLAXIS
     Dosage: 20 MG, QD
     Dates: start: 20130826
  4. FORTECORTIN [Concomitant]
     Indication: PROPHYLAXIS
     Dosage: 4 MG, TID
     Dates: start: 20130828
  5. DEXONA [Concomitant]
     Indication: PROPHYLAXIS
     Dosage: UNK
     Route: 042
  6. MANITOL [Concomitant]
     Dosage: UNK
     Route: 042

REACTIONS (1)
  - Epilepsy [Not Recovered/Not Resolved]
